FAERS Safety Report 13531823 (Version 2)
Quarter: 2017Q2

REPORT INFORMATION
  Report Type: Report from Study
  Country: US (occurrence: US)
  Receive Date: 20170510
  Receipt Date: 20170623
  Transmission Date: 20170830
  Serious: Yes (Other)
  Sender: FDA-Public Use
  Company Number: US-EMD SERONO-E2B_80067813

PATIENT
  Age: 61 Year
  Sex: Male
  Weight: 117 kg

DRUGS (2)
  1. PF-05082566 [Suspect]
     Active Substance: INVESTIGATIONAL PRODUCT
     Indication: LUNG NEOPLASM MALIGNANT
     Dosage: 100 MG, CYCLIC: ONCE EVERY 4 WEEKS
     Route: 042
     Dates: start: 20170424, end: 20170424
  2. AVELUMAB [Suspect]
     Active Substance: AVELUMAB
     Indication: LUNG NEOPLASM MALIGNANT
     Dosage: 10 MG/KG, CYCLIC: ONCE EVERY TWO WEEKS
     Route: 042
     Dates: start: 20170424, end: 20170424

REACTIONS (1)
  - Dyspnoea [Recovered/Resolved]

NARRATIVE: CASE EVENT DATE: 20170424
